FAERS Safety Report 5425281-7 (Version None)
Quarter: 2007Q3

REPORT INFORMATION
  Report Type: 
  Country: None (occurrence: None)
  Receive Date: 20070824
  Receipt Date: 20070814
  Transmission Date: 20080115
  Serious: Yes (Disabling)
  Sender: FDA-Public Use
  Company Number: US-GENENTECH-245872

PATIENT
  Sex: Female
  Weight: 95 kg

DRUGS (2)
  1. BEVACIZUMAB [Suspect]
     Indication: NON-SMALL CELL LUNG CANCER
     Dosage: 1425 MG, Q3W
     Route: 042
     Dates: start: 20070116
  2. ERLOTINIB [Suspect]
     Indication: NON-SMALL CELL LUNG CANCER
     Dosage: 150 UNK, QD
     Route: 048
     Dates: start: 20070116

REACTIONS (1)
  - FOOD ALLERGY [None]
